FAERS Safety Report 7042320-0 (Version None)
Quarter: 2010Q4

REPORT INFORMATION
  Report Type: 
  Country: None (occurrence: None)
  Receive Date: 20101013
  Receipt Date: 20100526
  Transmission Date: 20110411
  Serious: No
  Sender: FDA-Public Use
  Company Number: US-ASTRAZENECA-2010SE24372

PATIENT
  Age: 85 Year
  Sex: Female

DRUGS (2)
  1. SYMBICORT [Suspect]
     Indication: ASTHMA
     Route: 055
     Dates: start: 20100501, end: 20100525
  2. PULMICORT FLEXHALER [Concomitant]

REACTIONS (3)
  - DYSKINESIA [None]
  - FEELING ABNORMAL [None]
  - TREMOR [None]
